FAERS Safety Report 5295812-9 (Version None)
Quarter: 2007Q1

REPORT INFORMATION
  Report Type: 
  Country: None (occurrence: None)
  Receive Date: 20070322
  Receipt Date: 20070322
  Transmission Date: 20070707
  Serious: No
  Sender: FDA-Public Use
  Company Number: None

PATIENT
  Age: 60 Year
  Sex: Male

DRUGS (2)
  1. SULFACETAMIDE SODIUM, PREDNISOLONE SODIUM PHOSPHATE [Suspect]
     Dosage: SOLUTION/DROPS  BOTTLE, DROPPER 5 ML
  2. VIROPTIC [Suspect]
     Dosage: SOLUTION/DROPS  BOTTLE, DROPPER

REACTIONS (5)
  - CONDITION AGGRAVATED [None]
  - DRUG DISPENSING ERROR [None]
  - KERATITIS HERPETIC [None]
  - MEDICATION ERROR [None]
  - WRONG DRUG ADMINISTERED [None]
